FAERS Safety Report 13560131 (Version 1)
Quarter: 2017Q2

REPORT INFORMATION
  Report Type: Spontaneous
  Country: CA (occurrence: CA)
  Receive Date: 20170518
  Receipt Date: 20170518
  Transmission Date: 20170830
  Serious: Yes (Other)
  Sender: FDA-Public Use
  Company Number: CA-FRESENIUS KABI-FK201704192

PATIENT
  Age: 32 Year
  Sex: Male

DRUGS (2)
  1. BLEOMYCIN [Suspect]
     Active Substance: BLEOMYCIN SULFATE
     Indication: ARTERIOVENOUS MALFORMATION
     Route: 013
  2. BEVACIZUMAB [Suspect]
     Active Substance: BEVACIZUMAB
     Indication: ARTERIOVENOUS MALFORMATION
     Route: 042

REACTIONS (4)
  - Lip ulceration [Unknown]
  - Off label use [Unknown]
  - Skin ulcer [Unknown]
  - Superinfection bacterial [Unknown]
